FAERS Safety Report 14634935 (Version 1)
Quarter: 2018Q1

REPORT INFORMATION
  Report Type: Spontaneous
  Country: US (occurrence: US)
  Receive Date: 20180314
  Receipt Date: 20180314
  Transmission Date: 20180509
  Serious: Yes (Other)
  Sender: FDA-Public Use
  Company Number: US-BAYER-2018-047909

PATIENT
  Age: 55 Year
  Sex: Female

DRUGS (3)
  1. BAYER ASPIRIN [Suspect]
     Active Substance: ASPIRIN
  2. PLAVIX [Interacting]
     Active Substance: CLOPIDOGREL BISULFATE
  3. WARFARIN [Interacting]
     Active Substance: WARFARIN

REACTIONS (4)
  - Melaena [None]
  - Labelled drug-drug interaction medication error [None]
  - Drug administration error [None]
  - Varices oesophageal [None]
